FAERS Safety Report 18509749 (Version 2)
Quarter: 2020Q4

REPORT INFORMATION
  Report Type: Spontaneous
  Country: JP (occurrence: JP)
  Receive Date: 20201117
  Receipt Date: 20201120
  Transmission Date: 20210114
  Serious: Yes (Death, Other)
  Sender: FDA-Public Use
  Company Number: JP-GLAXOSMITHKLINE-JP2020225174

PATIENT
  Sex: Male
  Weight: 54 kg

DRUGS (76)
  1. MEPOLIZUMAB [Suspect]
     Active Substance: MEPOLIZUMAB
     Indication: EOSINOPHILIC GRANULOMATOSIS WITH POLYANGIITIS
     Dosage: 300 MG
     Route: 058
     Dates: start: 20180821, end: 20180821
  2. MEPOLIZUMAB [Suspect]
     Active Substance: MEPOLIZUMAB
     Dosage: 300 MG
     Route: 058
     Dates: start: 20190307, end: 20190307
  3. MEPOLIZUMAB [Suspect]
     Active Substance: MEPOLIZUMAB
     Dosage: 300 MG
     Route: 058
     Dates: start: 20190404, end: 20190404
  4. MEPOLIZUMAB [Suspect]
     Active Substance: MEPOLIZUMAB
     Dosage: 300 MG
     Route: 058
     Dates: start: 20190801, end: 20190801
  5. MEPOLIZUMAB [Suspect]
     Active Substance: MEPOLIZUMAB
     Dosage: 300 MG
     Route: 058
     Dates: start: 20200312, end: 20200312
  6. MEPOLIZUMAB [Suspect]
     Active Substance: MEPOLIZUMAB
     Dosage: 300 MG
     Route: 058
     Dates: start: 20200901, end: 20200901
  7. PREDONINE [Concomitant]
     Active Substance: PREDNISOLONE
     Dosage: 25 MG
     Route: 048
     Dates: start: 20180817, end: 20180823
  8. LANTUS XR SOLOSTAR INJECTION [Concomitant]
  9. REBAMIPIDE TABLETS [Concomitant]
     Indication: EOSINOPHILIC GRANULOMATOSIS WITH POLYANGIITIS
  10. GOOFICE TABLET [Concomitant]
     Indication: EOSINOPHILIC GRANULOMATOSIS WITH POLYANGIITIS
  11. CLOPIDOGREL SULFATE TABLETS [Concomitant]
     Indication: EMBOLISM
  12. ATORVASTATIN CALCIUM. [Concomitant]
     Active Substance: ATORVASTATIN CALCIUM
  13. MEPOLIZUMAB [Suspect]
     Active Substance: MEPOLIZUMAB
     Dosage: 300 MG
     Route: 058
     Dates: start: 20180918, end: 20180918
  14. MEPOLIZUMAB [Suspect]
     Active Substance: MEPOLIZUMAB
     Dosage: 300 MG
     Route: 058
     Dates: start: 20181018, end: 20181018
  15. MEPOLIZUMAB [Suspect]
     Active Substance: MEPOLIZUMAB
     Dosage: 300 MG
     Route: 058
     Dates: start: 20191219, end: 20191219
  16. MEPOLIZUMAB [Suspect]
     Active Substance: MEPOLIZUMAB
     Dosage: 300 MG
     Route: 058
     Dates: start: 20200116, end: 20200116
  17. FLUITRAN TABLET [Concomitant]
  18. LANSOPRAZOLE-OD TABLETS [Concomitant]
  19. MOVICOL [Concomitant]
     Active Substance: POLYETHYLENE GLYCOL 3350\POTASSIUM CHLORIDE\SODIUM BICARBONATE\SODIUM CHLORIDE
  20. MEPOLIZUMAB [Suspect]
     Active Substance: MEPOLIZUMAB
     Dosage: 300 MG
     Route: 058
     Dates: start: 20191024, end: 20191024
  21. MEPOLIZUMAB [Suspect]
     Active Substance: MEPOLIZUMAB
     Dosage: 300 MG
     Route: 058
     Dates: start: 20200702, end: 20200702
  22. PREDONINE [Concomitant]
     Active Substance: PREDNISOLONE
     Dosage: 15 MG
     Route: 048
     Dates: start: 20180907, end: 20180920
  23. AZILVA TABLETS [Concomitant]
  24. BENAMBAX INHALATION [Concomitant]
     Indication: ANTIFUNGAL PROPHYLAXIS
  25. SUMILU STICK [Concomitant]
     Active Substance: FELBINAC
  26. HEPARINOID OIL-BASED CREAM 0.3% [Concomitant]
     Indication: EOSINOPHILIC GRANULOMATOSIS WITH POLYANGIITIS
  27. LOXONIN TABLETS [Concomitant]
     Active Substance: LOXOPROFEN SODIUM
     Indication: EOSINOPHILIC GRANULOMATOSIS WITH POLYANGIITIS
  28. CLOPIDOGREL SULFATE TABLETS [Concomitant]
     Indication: THROMBOSIS PROPHYLAXIS
  29. LUNESTA TABLETS [Concomitant]
  30. ETHYL ICOSAPENTATE GRANULAR CAPSULE [Concomitant]
     Indication: THROMBOSIS PROPHYLAXIS
  31. MEPOLIZUMAB [Suspect]
     Active Substance: MEPOLIZUMAB
     Dosage: 300 MG
     Route: 058
     Dates: start: 20190509, end: 20190509
  32. MEPOLIZUMAB [Suspect]
     Active Substance: MEPOLIZUMAB
     Dosage: 300 MG
     Route: 058
     Dates: start: 20190704, end: 20190704
  33. MEPOLIZUMAB [Suspect]
     Active Substance: MEPOLIZUMAB
     Dosage: 300 MG
     Route: 058
     Dates: start: 20191121, end: 20191121
  34. PREDONINE [Concomitant]
     Active Substance: PREDNISOLONE
     Indication: EOSINOPHILIC GRANULOMATOSIS WITH POLYANGIITIS
     Dosage: 30 MG
     Route: 048
     Dates: start: 20180728, end: 20180816
  35. PREDONINE [Concomitant]
     Active Substance: PREDNISOLONE
     Dosage: 20 MG
     Route: 048
     Dates: start: 20180824, end: 20180830
  36. BENAMBAX INHALATION [Concomitant]
     Indication: ANTIFUNGAL PROPHYLAXIS
     Route: 055
  37. FOSRENOL OD TABLET [Concomitant]
  38. RINDERON-VG LOTION [Concomitant]
     Dosage: UNK
     Dates: start: 20191106, end: 20200604
  39. FUROSEMIDE TABLETS [Concomitant]
     Active Substance: FUROSEMIDE
  40. MEPOLIZUMAB [Suspect]
     Active Substance: MEPOLIZUMAB
     Dosage: 300 MG
     Route: 058
     Dates: start: 20181101, end: 20181101
  41. MEPOLIZUMAB [Suspect]
     Active Substance: MEPOLIZUMAB
     Dosage: 300 MG
     Route: 058
     Dates: start: 20181129, end: 20181129
  42. MEPOLIZUMAB [Suspect]
     Active Substance: MEPOLIZUMAB
     Dosage: 300 MG
     Route: 058
     Dates: start: 20190829, end: 20190829
  43. PREDONINE [Concomitant]
     Active Substance: PREDNISOLONE
     Dosage: 17.5 MG
     Route: 048
     Dates: start: 20180831, end: 20180906
  44. HARNAL D TABLETS [Concomitant]
  45. OXAROL [Concomitant]
     Active Substance: MAXACALCITOL
  46. MEPOLIZUMAB [Suspect]
     Active Substance: MEPOLIZUMAB
     Dosage: 300 MG
     Route: 058
     Dates: start: 20200409, end: 20200409
  47. BAYASPIRIN TABLETS [Concomitant]
     Indication: THROMBOSIS PROPHYLAXIS
  48. MERCAZOLE TABLETS [Concomitant]
  49. TSUMURA SHAKUYAKUKANZOTO EXTRACT GRANULES [Concomitant]
  50. AMITIZA CAPSULE [Concomitant]
  51. DARBEPOETIN ALFA (GENETICAL RECOMBINATION) [Concomitant]
  52. MEPOLIZUMAB [Suspect]
     Active Substance: MEPOLIZUMAB
     Dosage: 300 MG
     Route: 058
     Dates: start: 20190207, end: 20190207
  53. MEPOLIZUMAB [Suspect]
     Active Substance: MEPOLIZUMAB
     Dosage: 300 MG
     Route: 058
     Dates: start: 20200507, end: 20200507
  54. MEPOLIZUMAB [Suspect]
     Active Substance: MEPOLIZUMAB
     Dosage: 300 MG
     Route: 058
     Dates: start: 20200604, end: 20200604
  55. MEPOLIZUMAB [Suspect]
     Active Substance: MEPOLIZUMAB
     Dosage: 300 MG
     Route: 058
     Dates: start: 20201002, end: 20201002
  56. HUMALOG PEN [Concomitant]
     Active Substance: INSULIN LISPRO
  57. LOXONIN TAPE [Concomitant]
     Active Substance: LOXOPROFEN SODIUM DIHYDRATE
  58. MEPOLIZUMAB [Suspect]
     Active Substance: MEPOLIZUMAB
     Dosage: 300 MG
     Route: 058
     Dates: start: 20181213, end: 20181213
  59. MEPOLIZUMAB [Suspect]
     Active Substance: MEPOLIZUMAB
     Dosage: 300 MG
     Route: 058
     Dates: start: 20190110, end: 20190110
  60. MEPOLIZUMAB [Suspect]
     Active Substance: MEPOLIZUMAB
     Dosage: 300 MG
     Route: 058
     Dates: start: 20190606, end: 20190606
  61. MEPOLIZUMAB [Suspect]
     Active Substance: MEPOLIZUMAB
     Dosage: 300 MG
     Route: 058
     Dates: start: 20190926, end: 20190926
  62. MEPOLIZUMAB [Suspect]
     Active Substance: MEPOLIZUMAB
     Dosage: 300 MG
     Route: 058
     Dates: start: 20200213, end: 20200213
  63. MEPOLIZUMAB [Suspect]
     Active Substance: MEPOLIZUMAB
     Dosage: 300 MG
     Route: 058
     Dates: start: 20200806, end: 20200806
  64. PREDONINE [Concomitant]
     Active Substance: PREDNISOLONE
     Dosage: 12.5 MG
     Route: 048
     Dates: start: 20180921, end: 20181114
  65. PREDONINE [Concomitant]
     Active Substance: PREDNISOLONE
     Dosage: 10 MG
     Route: 048
     Dates: start: 20181115
  66. PREDNISOLONE TABLETS [Concomitant]
     Active Substance: PREDNISOLONE
     Indication: EOSINOPHILIC GRANULOMATOSIS WITH POLYANGIITIS
     Dosage: 2 MG
     Route: 048
     Dates: start: 20181115
  67. AMLODIN OD TABLETS [Concomitant]
  68. LAXOBERON TABLET [Concomitant]
  69. LASIX [Concomitant]
     Active Substance: FUROSEMIDE
  70. NESP INJECTION PLASTIC SYRINGE [Concomitant]
  71. FEBURIC TABLETS [Concomitant]
     Active Substance: FEBUXOSTAT
  72. ANTEBATE OINTMENT [Concomitant]
     Active Substance: BETAMETHASONE BUTYRATE PROPIONATE
     Dosage: UNK
     Dates: start: 20191106, end: 20200604
  73. RINDERON-VG OINTMENT [Concomitant]
     Dosage: UNK
     Dates: start: 20200630, end: 20200630
  74. SODIUM PICOSULFATE [Concomitant]
     Active Substance: SODIUM PICOSULFATE
  75. NOBELZIN TABLETS [Concomitant]
  76. SHIGMABITAN COMBINATION CAPSULES [Concomitant]

REACTIONS (2)
  - Chronic kidney disease [Fatal]
  - Sepsis [Fatal]
